FAERS Safety Report 9176402 (Version 1)
Quarter: 2013Q1

REPORT INFORMATION
  Report Type: Spontaneous
  Country: FR (occurrence: FR)
  Receive Date: 20130321
  Receipt Date: 20130321
  Transmission Date: 20140127
  Serious: Yes (Hospitalization)
  Sender: FDA-Public Use
  Company Number: FR-RANBAXY-2013RR-66283

PATIENT
  Age: 36 Year
  Sex: Male

DRUGS (2)
  1. AMOXICILLINE [Suspect]
     Indication: TOOTHACHE
     Dosage: 1 DF, DAILY
     Route: 048
     Dates: start: 201204, end: 201204
  2. IBUPROFENE [Suspect]
     Indication: TOOTHACHE
     Dosage: 1 DF, DAILY
     Route: 048
     Dates: start: 201204, end: 201204

REACTIONS (2)
  - Urticaria [Recovered/Resolved]
  - Face oedema [Recovered/Resolved]
